FAERS Safety Report 13356501 (Version 1)
Quarter: 2017Q1

REPORT INFORMATION
  Report Type: Spontaneous
  Country: AU (occurrence: AU)
  Receive Date: 20170321
  Receipt Date: 20170321
  Transmission Date: 20170429
  Serious: Yes (Other)
  Sender: FDA-Public Use
  Company Number: AU-PFIZER INC-HQWYE652004APR05

PATIENT
  Age: 24 Year

DRUGS (1)
  1. EFEXOR [Suspect]
     Active Substance: VENLAFAXINE HYDROCHLORIDE
     Dosage: 4 DOSE UNSPECIFIED
     Route: 048

REACTIONS (4)
  - Agitation [Unknown]
  - Homicidal ideation [Unknown]
  - Physical assault [Unknown]
  - Aggression [Unknown]
